FAERS Safety Report 14431480 (Version 1)
Quarter: 2018Q1

REPORT INFORMATION
  Report Type: Spontaneous
  Country: US (occurrence: US)
  Receive Date: 20180124
  Receipt Date: 20180124
  Transmission Date: 20180509
  Serious: Yes (Hospitalization)
  Sender: FDA-Public Use
  Company Number: US-PROCTER+GAMBLE-GS18006916

PATIENT
  Age: 27 Year
  Sex: Female

DRUGS (3)
  1. P+GUNKNONPGCALCARBONATENPGZCAC# [Suspect]
     Active Substance: CALCIUM CARBONATE
     Indication: HYPOCALCAEMIA
  2. P+GUNKNONPGCALCARBONATENPGZCAC# [Suspect]
     Active Substance: CALCIUM CARBONATE
     Indication: FATIGUE
  3. P+GUNKNONPGCALCARBONATENPGZCAC# [Suspect]
     Active Substance: CALCIUM CARBONATE
     Indication: HYPOAESTHESIA ORAL
     Dosage: HAD BEEN TAKING UP TO 46 CALCIUM CARBONATE SUPPLEMENTS
     Route: 048

REACTIONS (11)
  - Vomiting [Unknown]
  - Pancreatitis [Unknown]
  - Haemolytic anaemia [Unknown]
  - Thrombotic thrombocytopenic purpura [Unknown]
  - Acute kidney injury [Recovering/Resolving]
  - Milk-alkali syndrome [Unknown]
  - Pyrexia [Unknown]
  - Abdominal pain [Unknown]
  - Red blood cell schistocytes present [Recovering/Resolving]
  - Blood calcium increased [Unknown]
  - Nausea [Unknown]
